FAERS Safety Report 22299510 (Version 1)
Quarter: 2023Q2

REPORT INFORMATION
  Report Type: Spontaneous
  Country: US (occurrence: None)
  Receive Date: 20230508
  Receipt Date: 20230508
  Transmission Date: 20230721
  Serious: No
  Sender: FDA-Public Use
  Company Number: None

PATIENT
  Age: 51 Year
  Sex: Female

DRUGS (1)
  1. CICLOPIROX [Suspect]
     Active Substance: CICLOPIROX
     Indication: Dermatophytosis of nail

REACTIONS (2)
  - Dermatophytosis of nail [None]
  - Condition aggravated [None]

NARRATIVE: CASE EVENT DATE: 20230508
